FAERS Safety Report 7096179-6 (Version None)
Quarter: 2010Q4

REPORT INFORMATION
  Report Type: 
  Country: None (occurrence: None)
  Receive Date: 20101111
  Receipt Date: 20101101
  Transmission Date: 20110411
  Serious: Yes (Hospitalization)
  Sender: FDA-Public Use
  Company Number: US-ROCHE-738180

PATIENT
  Sex: Female

DRUGS (5)
  1. MYCOPHENOLATE MOFETIL [Suspect]
     Route: 065
     Dates: start: 20070407
  2. CYCLOSPORINE [Suspect]
     Route: 065
     Dates: start: 20070409
  3. ZOCOR [Concomitant]
     Dates: start: 19960101
  4. DAPSONE [Concomitant]
     Dates: start: 20070406
  5. PREDNISONE [Concomitant]
     Dates: start: 20070405

REACTIONS (6)
  - ATRIAL FIBRILLATION [None]
  - ESCHERICHIA SEPSIS [None]
  - FLUID OVERLOAD [None]
  - PYELONEPHRITIS [None]
  - SEPSIS [None]
  - SYSTEMIC INFLAMMATORY RESPONSE SYNDROME [None]
